FAERS Safety Report 7080866-X (Version None)
Quarter: 2010Q4

REPORT INFORMATION
  Report Type: 
  Country: None (occurrence: None)
  Receive Date: 20101103
  Receipt Date: 20101025
  Transmission Date: 20110411
  Serious: Yes (Other)
  Sender: FDA-Public Use
  Company Number: US-PFIZER INC-2010136040

PATIENT
  Sex: Female

DRUGS (1)
  1. DETROL LA [Suspect]
     Dosage: 4 MG DAILY

REACTIONS (4)
  - AMNESIA [None]
  - BALANCE DISORDER [None]
  - DIPLOPIA [None]
  - DRY MOUTH [None]
